FAERS Safety Report 11286176 (Version 1)
Quarter: 2015Q3

REPORT INFORMATION
  Report Type: Spontaneous
  Country: US (occurrence: US)
  Receive Date: 20150721
  Receipt Date: 20150721
  Transmission Date: 20151125
  Serious: No
  Sender: FDA-Public Use
  Company Number: US-UNITED THERAPEUTICS-UNT-2014-011928

PATIENT
  Sex: Female
  Weight: 79.37 kg

DRUGS (3)
  1. ADCIRCA [Concomitant]
     Active Substance: TADALAFIL
     Indication: PRODUCT USED FOR UNKNOWN INDICATION
  2. COUMADIN [Concomitant]
     Active Substance: WARFARIN SODIUM
     Indication: PRODUCT USED FOR UNKNOWN INDICATION
  3. TYVASO [Suspect]
     Active Substance: TREPROSTINIL
     Indication: PULMONARY ARTERIAL HYPERTENSION
     Dosage: 18-54 MICROGRAMS, QID
     Dates: start: 20141029, end: 20141215

REACTIONS (6)
  - Malaise [Unknown]
  - Vomiting [Unknown]
  - Oropharyngeal pain [Unknown]
  - Therapy cessation [Unknown]
  - Abdominal pain upper [Unknown]
  - Headache [Unknown]

NARRATIVE: CASE EVENT DATE: 2014
